FAERS Safety Report 9233403 (Version 1)
Quarter: 2013Q2

REPORT INFORMATION
  Report Type: Spontaneous
  Country: US (occurrence: US)
  Receive Date: 20130416
  Receipt Date: 20130416
  Transmission Date: 20140414
  Serious: No
  Sender: FDA-Public Use
  Company Number: US-BANPHARM-20131012

PATIENT
  Age: 76 Year
  Sex: Female
  Weight: 49.9 kg

DRUGS (5)
  1. ALEVE LIQUID GELS 220MG [Suspect]
     Indication: BACK PAIN
     Dosage: BID,
     Route: 048
     Dates: start: 20120511, end: 20120522
  2. TYLENOL [Concomitant]
  3. ZIAC [Concomitant]
  4. XANAX [Concomitant]
  5. HYDROCHLOROTHIAZIDE [Concomitant]

REACTIONS (2)
  - Local swelling [Recovered/Resolved]
  - Incorrect drug administration duration [Unknown]
